FAERS Safety Report 5978586-5 (Version None)
Quarter: 2008Q4

REPORT INFORMATION
  Report Type: 
  Country: None (occurrence: None)
  Receive Date: 20081204
  Receipt Date: 20081202
  Transmission Date: 20090506
  Serious: Yes (Hospitalization)
  Sender: FDA-Public Use
  Company Number: B0532078A

PATIENT
  Sex: Female
  Weight: 60 kg

DRUGS (2)
  1. TOPOTECAN [Suspect]
     Dosage: 1.3MG CYCLIC
     Route: 042
     Dates: start: 20080716
  2. CARBOPLATIN [Suspect]
     Dosage: 386.25MG CYCLIC
     Route: 042
     Dates: start: 20080718

REACTIONS (8)
  - C-REACTIVE PROTEIN INCREASED [None]
  - DEHYDRATION [None]
  - DIARRHOEA [None]
  - GENERAL PHYSICAL HEALTH DETERIORATION [None]
  - INFECTION [None]
  - PLATELET COUNT [None]
  - PYREXIA [None]
  - THROMBOCYTOPENIA [None]
